FAERS Safety Report 13555409 (Version 1)
Quarter: 2017Q2

REPORT INFORMATION
  Report Type: Spontaneous
  Country: US (occurrence: US)
  Receive Date: 20170517
  Receipt Date: 20170517
  Transmission Date: 20170830
  Serious: No
  Sender: FDA-Public Use
  Company Number: US-APOTEX-2017AP012131

PATIENT
  Age: 60 Year
  Sex: Female

DRUGS (2)
  1. NICOTINE TRANSDERMAL SYSTEM [Suspect]
     Active Substance: NICOTINE
     Indication: SMOKING CESSATION THERAPY
     Dosage: 21 MG, ONE PATCH PER DAY
     Route: 062
     Dates: start: 20170501
  2. OLANZAPINE. [Concomitant]
     Active Substance: OLANZAPINE
     Indication: DEPRESSION
     Dosage: 5 MG, Q.H.S.
     Route: 065

REACTIONS (8)
  - Overdose [Unknown]
  - Agitation [Unknown]
  - Chest pain [Unknown]
  - Restlessness [Unknown]
  - Muscle spasms [Unknown]
  - Disturbance in attention [Unknown]
  - Feeling abnormal [Unknown]
  - Dizziness [Unknown]

NARRATIVE: CASE EVENT DATE: 20170507
